FAERS Safety Report 8501896-4 (Version None)
Quarter: 2012Q3

REPORT INFORMATION
  Report Type: 
  Country: None (occurrence: None)
  Receive Date: 20120711
  Receipt Date: 20120704
  Transmission Date: 20120928
  Serious: Yes (Other)
  Sender: FDA-Public Use
  Company Number: PHHY2012BR048592

PATIENT
  Sex: Female

DRUGS (8)
  1. ONBREZ [Suspect]
     Indication: LUNG DISORDER
     Dosage: 150 UG, ONE TIME DAILY
  2. METFORMIN HYDROCHLORIDE [Concomitant]
     Indication: DIABETES MELLITUS
     Dosage: 50 MG, DAILY
     Route: 048
  3. CALCIODEX [Concomitant]
     Dosage: 2 DF (500MG) DAILY
     Route: 048
  4. DIOVAN [Suspect]
     Dosage: 80 MG, IN THE MORNING
     Route: 048
  5. ALLOPURINOL [Concomitant]
     Indication: BLOOD URIC ACID
     Dosage: 300 MG, DAILY
     Route: 048
  6. HYDREA [Concomitant]
     Indication: BLOOD DISORDER
     Dosage: 2 DF (500MG) DAILY
     Route: 048
  7. BAMIFIX [Concomitant]
     Indication: RESPIRATORY DISORDER
     Dosage: 600 MG, DAILY
     Route: 048
  8. SIMVASTATIN [Concomitant]
     Dosage: 1 DF, DAILY
     Route: 048

REACTIONS (2)
  - BLOOD PRESSURE FLUCTUATION [None]
  - DYSPNOEA [None]
